FAERS Safety Report 4394089-6 (Version None)
Quarter: 2004Q3

REPORT INFORMATION
  Report Type: 
  Country: None (occurrence: None)
  Receive Date: 20040708
  Receipt Date: 20040708
  Transmission Date: 20050211
  Serious: Yes (Other)
  Sender: FDA-Public Use
  Company Number: None

PATIENT
  Sex: Female
  Weight: 56.6996 kg

DRUGS (1)
  1. TRIVORA-21 [Suspect]
     Indication: ORAL CONTRACEPTION
     Dosage: 1 DAILY DAILY ORAL
     Route: 048
     Dates: start: 20040702, end: 20040707

REACTIONS (2)
  - METRORRHAGIA [None]
  - PHARMACEUTICAL PRODUCT COMPLAINT [None]
